FAERS Safety Report 5513694-4 (Version None)
Quarter: 2007Q4

REPORT INFORMATION
  Report Type: 
  Country: None (occurrence: None)
  Receive Date: 20071113
  Receipt Date: 20071101
  Transmission Date: 20080405
  Serious: Yes (Hospitalization)
  Sender: FDA-Public Use
  Company Number: JP-NOVOPROD-268798

PATIENT
  Age: 60 Year
  Sex: Male

DRUGS (3)
  1. NOVORAPID 30 MIX CHU [Suspect]
     Indication: INSULIN-REQUIRING TYPE II DIABETES MELLITUS
     Dosage: 23 IU, QD
     Route: 058
     Dates: start: 20050601
  2. NOVOLIN U CHU [Concomitant]
  3. HUMALOG [Concomitant]

REACTIONS (3)
  - ANTI-INSULIN ANTIBODY [None]
  - EPIDIDYMAL INFECTION [None]
  - HYPERGLYCAEMIA [None]
